FAERS Safety Report 19454932 (Version 1)
Quarter: 2021Q2

REPORT INFORMATION
  Report Type: Spontaneous
  Country: FR (occurrence: FR)
  Receive Date: 20210623
  Receipt Date: 20210623
  Transmission Date: 20210717
  Serious: Yes (Hospitalization)
  Sender: FDA-Public Use
  Company Number: NVSC2021FR134453

PATIENT
  Age: 17 Year
  Sex: Female

DRUGS (5)
  1. IBUPROFEN. [Suspect]
     Active Substance: IBUPROFEN
     Indication: SUICIDE ATTEMPT
     Dosage: 6 G TOTAL
     Route: 048
     Dates: start: 20210131, end: 20210131
  2. PARACETAMOL [Suspect]
     Active Substance: ACETAMINOPHEN
     Indication: SUICIDE ATTEMPT
     Dosage: 12 G TOTAL
     Route: 048
     Dates: start: 20210131, end: 20210131
  3. PONSTYL [Suspect]
     Active Substance: MEFENAMIC ACID
     Indication: SUICIDE ATTEMPT
     Dosage: 2 G TOTAL
     Route: 048
     Dates: start: 20210131, end: 20210131
  4. BIPROFENID [Suspect]
     Active Substance: KETOPROFEN
     Indication: SUICIDE ATTEMPT
     Dosage: 900 MG TOTAL
     Route: 048
     Dates: start: 20210131, end: 20210131
  5. SPASFON (PHLOROGLUCINOL/TRIMETHYLPHLOROGLUCINOL) [Suspect]
     Active Substance: PHLOROGLUCINOL\1,3,5-TRIMETHOXYBENZENE
     Indication: SUICIDE ATTEMPT
     Dosage: 640 MG TOTAL
     Route: 048
     Dates: start: 20210131, end: 20210131

REACTIONS (4)
  - Nausea [Recovered/Resolved]
  - Abdominal pain upper [Recovered/Resolved]
  - Toxicity to various agents [Recovered/Resolved]
  - Vomiting [Recovered/Resolved]

NARRATIVE: CASE EVENT DATE: 20210131
